FAERS Safety Report 8544001-0 (Version None)
Quarter: 2012Q3

REPORT INFORMATION
  Report Type: 
  Country: None (occurrence: None)
  Receive Date: 20120727
  Receipt Date: 20120725
  Transmission Date: 20120928
  Serious: Yes (Hospitalization)
  Sender: FDA-Public Use
  Company Number: US-PFIZER INC-2012092860

PATIENT
  Sex: Female
  Weight: 87 kg

DRUGS (3)
  1. SOLU-MEDROL [Suspect]
     Indication: WHEEZING
  2. LEVOFLOXACIN [Concomitant]
     Dosage: 500 MG, UNK
     Route: 042
  3. SOLU-MEDROL [Suspect]
     Indication: ASTHMA
     Dosage: 40 MG, 1X/DAY
     Route: 042
     Dates: start: 20120412, end: 20120412

REACTIONS (5)
  - HYPERSENSITIVITY [None]
  - FLUSHING [None]
  - PRURITUS [None]
  - DYSPNOEA [None]
  - CHEST DISCOMFORT [None]
